FAERS Safety Report 16656976 (Version 1)
Quarter: 2019Q3

REPORT INFORMATION
  Report Type: Spontaneous
  Country: US (occurrence: US)
  Receive Date: 20190801
  Receipt Date: 20190801
  Transmission Date: 20191004
  Serious: No
  Sender: FDA-Public Use
  Company Number: US-PFIZER INC-2019328085

PATIENT
  Age: 59 Year
  Sex: Female

DRUGS (4)
  1. CLINDAMYCIN. [Suspect]
     Active Substance: CLINDAMYCIN
     Dosage: UNK
  2. BUPROPION. [Suspect]
     Active Substance: BUPROPION
     Dosage: UNK
  3. GABAPENTIN. [Suspect]
     Active Substance: GABAPENTIN
     Dosage: UNK
  4. LITHIUM. [Suspect]
     Active Substance: LITHIUM
     Dosage: UNK

REACTIONS (1)
  - Drug hypersensitivity [Unknown]
